FAERS Safety Report 21575135 (Version 1)
Quarter: 2022Q4

REPORT INFORMATION
  Report Type: Report from Study
  Country: AT (occurrence: AT)
  Receive Date: 20221110
  Receipt Date: 20221110
  Transmission Date: 20230112
  Serious: Yes (Other)
  Sender: FDA-Public Use
  Company Number: AT-002147023-NVSC2022AT249402

PATIENT
  Sex: Female

DRUGS (2)
  1. CAPMATINIB [Suspect]
     Active Substance: CAPMATINIB
     Indication: Lung adenocarcinoma
     Dosage: UNK (STRENGTH: 800 MG)
     Route: 065
  2. CAPMATINIB [Suspect]
     Active Substance: CAPMATINIB
     Dosage: UNK
     Route: 065

REACTIONS (2)
  - Hepatitis [Unknown]
  - Oedema peripheral [Recovering/Resolving]
